FAERS Safety Report 8811158 (Version 2)
Quarter: 2012Q4

REPORT INFORMATION
  Report Type: 
  Country: US (occurrence: US)
  Receive Date: 20120927
  Receipt Date: 20121009
  Transmission Date: 20130627
  Serious: Yes (Death)
  Sender: FDA-Public Use
  Company Number: PHEH2012US018730

PATIENT
  Age: 74 Year
  Sex: Female

DRUGS (1)
  1. AFINITOR [Suspect]
     Dosage: 10 mg/day
     Route: 048
     Dates: start: 20120712

REACTIONS (1)
  - Death [Fatal]
